FAERS Safety Report 7721847-X (Version None)
Quarter: 2011Q3

REPORT INFORMATION
  Report Type: 
  Country: None (occurrence: None)
  Receive Date: 20110825
  Receipt Date: 20110818
  Transmission Date: 20111222
  Serious: Yes (Hospitalization)
  Sender: FDA-Public Use
  Company Number: 15785058

PATIENT
  Age: 63 Year
  Sex: Male

DRUGS (9)
  1. SPIRIVA [Concomitant]
  2. FUROSEMIDE [Concomitant]
  3. MAGNESIUM OXIDE (MAGNESIUM OXIDE) [Concomitant]
  4. WARFARIN SODIUM [Suspect]
     Indication: EMBOLISM
     Dosage: 2 MILLIGRAM, 1 DAY, ORAL
     Route: 048
     Dates: start: 20110423
  5. PREDNISOLONE [Concomitant]
  6. ENOXAPARIN SODIUM [Suspect]
     Indication: EMBOLISM
     Dosage: .68 MILLILITER, SC
     Route: 058
     Dates: start: 20110423, end: 20110427
  7. SYMBICORT [Concomitant]
  8. PLACEBO [Suspect]
     Indication: EMBOLISM
     Dates: start: 20110423
  9. APIXABAN [Suspect]
     Indication: EMBOLISM
     Dosage: 10 MILLIGRAM, 1 DAY, ORAL
     Route: 048
     Dates: start: 20110423

REACTIONS (3)
  - BRONCHOPNEUMONIA [None]
  - HAEMOPTYSIS [None]
  - HAEMOGLOBIN DECREASED [None]
